FAERS Safety Report 7323237-0 (Version None)
Quarter: 2011Q1

REPORT INFORMATION
  Report Type: 
  Country: None (occurrence: None)
  Receive Date: 20110217
  Receipt Date: 20110208
  Transmission Date: 20110831
  Serious: Yes (Hospitalization)
  Sender: FDA-Public Use
  Company Number: 026282

PATIENT
  Sex: Female
  Weight: 50 kg

DRUGS (5)
  1. METHOTREXATE [Concomitant]
  2. ACIDUM FOLICUM [Concomitant]
  3. PREDNISOLONE [Concomitant]
  4. CERTOLIZUMAB PEGOL (CDP870) [Suspect]
     Indication: RHEUMATOID ARTHRITIS
     Dosage: 400 MG 38 DOSES RECEIVED, SUBCUTANEOUS; 200 MG-75 DOSES RECEIVED, SUBCUTANEOUS
     Route: 058
     Dates: start: 20060605, end: 20080211
  5. CERTOLIZUMAB PEGOL (CDP870) [Suspect]
     Indication: RHEUMATOID ARTHRITIS
     Dosage: 400 MG 38 DOSES RECEIVED, SUBCUTANEOUS; 200 MG-75 DOSES RECEIVED, SUBCUTANEOUS
     Route: 058
     Dates: start: 20080211, end: 20110126

REACTIONS (3)
  - PURULENT DISCHARGE [None]
  - ANAL FISTULA [None]
  - PERIPROCTITIS [None]
